FAERS Safety Report 13342236 (Version 1)
Quarter: 2017Q1

REPORT INFORMATION
  Report Type: Spontaneous
  Country: US (occurrence: US)
  Receive Date: 20170316
  Receipt Date: 20170316
  Transmission Date: 20170428
  Serious: No
  Sender: FDA-Public Use
  Company Number: US-DEPOMED, INC.-US-2016DEP009716

PATIENT

DRUGS (4)
  1. GRALISE [Suspect]
     Active Substance: GABAPENTIN
     Dosage: 600 MG, TAKING WITH EVENING MEAL
     Route: 048
     Dates: start: 20160507, end: 20160507
  2. GRALISE [Suspect]
     Active Substance: GABAPENTIN
     Indication: CROHN^S DISEASE
     Dosage: 300 MG, TAKING WITH EVENING MEAL
     Route: 048
     Dates: start: 20160506, end: 20160506
  3. GRALISE [Suspect]
     Active Substance: GABAPENTIN
     Dosage: 300,600 MG TAKING WITH EVENING MEAL
     Route: 048
     Dates: start: 20160508, end: 20160511
  4. GRALISE [Suspect]
     Active Substance: GABAPENTIN
     Dosage: 600 MG, TWICE A DAY
     Route: 048
     Dates: start: 20160512

REACTIONS (2)
  - Off label use [Not Recovered/Not Resolved]
  - Drug titration error [Not Recovered/Not Resolved]

NARRATIVE: CASE EVENT DATE: 20160506
